FAERS Safety Report 25532367 (Version 1)
Quarter: 2025Q3

REPORT INFORMATION
  Report Type: Spontaneous
  Country: US (occurrence: US)
  Receive Date: 20250709
  Receipt Date: 20250709
  Transmission Date: 20251020
  Serious: No
  Sender: LEO PHARM
  Company Number: US-LEO Pharma-381209

PATIENT
  Age: 51 Year
  Sex: Male

DRUGS (1)
  1. ADBRY [Suspect]
     Active Substance: TRALOKINUMAB-LDRM
     Indication: Hypocalcaemia
     Dosage: REPORTED AS ONGOING
     Dates: start: 202410

REACTIONS (2)
  - Product prescribing issue [Unknown]
  - Condition aggravated [Unknown]
